FAERS Safety Report 5915007-2 (Version None)
Quarter: 2008Q4

REPORT INFORMATION
  Report Type: 
  Country: None (occurrence: None)
  Receive Date: 20081010
  Receipt Date: 20080925
  Transmission Date: 20090506
  Serious: Yes (Death, Other)
  Sender: FDA-Public Use
  Company Number: CN-BAYER-200827698GPV

PATIENT

DRUGS (1)
  1. ASPIRIN [Suspect]
     Indication: CEREBROVASCULAR ACCIDENT
     Route: 065

REACTIONS (18)
  - BLOOD URINE PRESENT [None]
  - CEREBRAL HAEMATOMA [None]
  - COMPLETED SUICIDE [None]
  - EPISTAXIS [None]
  - GINGIVAL BLEEDING [None]
  - HAEMOPTYSIS [None]
  - HAEMORRHAGIC STROKE [None]
  - HEPATIC NEOPLASM MALIGNANT [None]
  - ISCHAEMIC STROKE [None]
  - MYOCARDIAL INFARCTION [None]
  - OCCULT BLOOD [None]
  - PALPITATIONS [None]
  - PANCREATITIS [None]
  - PURPURA [None]
  - SCLERAL HAEMORRHAGE [None]
  - TACHYCARDIA [None]
  - UPPER GASTROINTESTINAL HAEMORRHAGE [None]
  - VAGINAL HAEMORRHAGE [None]
